FAERS Safety Report 5594684-2 (Version None)
Quarter: 2008Q1

REPORT INFORMATION
  Report Type: 
  Country: None (occurrence: None)
  Receive Date: 20080117
  Receipt Date: 20080109
  Transmission Date: 20080703
  Serious: Yes (Hospitalization)
  Sender: FDA-Public Use
  Company Number: FR-AVENTIS-200810092FR

PATIENT
  Age: 73 Year
  Sex: Male

DRUGS (7)
  1. CLAFORAN [Suspect]
     Route: 042
     Dates: start: 20071031, end: 20071107
  2. TRAMADOL HCL [Suspect]
     Route: 048
     Dates: start: 20071027, end: 20071107
  3. VESANOID [Suspect]
     Dosage: DOSE: 50-40
     Route: 048
     Dates: start: 20071024, end: 20071113
  4. VANCOMYCIN [Suspect]
     Route: 042
     Dates: start: 20071103, end: 20071107
  5. DEXAMETHASONE TAB [Suspect]
     Route: 042
     Dates: start: 20071030, end: 20071104
  6. LEXOMIL [Suspect]
     Route: 048
     Dates: start: 20071025, end: 20071108
  7. RIVOTRIL [Suspect]
     Route: 048
     Dates: end: 20071108

REACTIONS (1)
  - PANNICULITIS [None]
